FAERS Safety Report 6834368-3 (Version None)
Quarter: 2010Q3

REPORT INFORMATION
  Report Type: 
  Country: None (occurrence: None)
  Receive Date: 20100712
  Receipt Date: 20070424
  Transmission Date: 20110219
  Serious: No
  Sender: FDA-Public Use
  Company Number: US-PFIZER INC-2007034431

PATIENT
  Sex: Female
  Weight: 70 kg

DRUGS (6)
  1. CHANTIX [Suspect]
     Indication: SMOKING CESSATION THERAPY
     Dates: start: 20070424
  2. IMITREX [Concomitant]
     Indication: MIGRAINE
  3. DOXEPIN HCL [Concomitant]
  4. KLONOPIN [Concomitant]
  5. PROZAC [Concomitant]
  6. VALTREX [Concomitant]

REACTIONS (6)
  - ASTHENIA [None]
  - BALANCE DISORDER [None]
  - DIZZINESS [None]
  - FEELING ABNORMAL [None]
  - NAUSEA [None]
  - VOMITING [None]
